FAERS Safety Report 7198954-6 (Version None)
Quarter: 2010Q4

REPORT INFORMATION
  Report Type: 
  Country: None (occurrence: None)
  Receive Date: 20101227
  Receipt Date: 20101221
  Transmission Date: 20110411
  Serious: Yes (Hospitalization)
  Sender: FDA-Public Use
  Company Number: DE-BRISTOL-MYERS SQUIBB COMPANY-15456098

PATIENT
  Age: 58 Year

DRUGS (3)
  1. CETUXIMAB [Suspect]
     Indication: HEAD AND NECK CANCER
     Dosage: 760MG FROM 25AUG2010- 415MG FROM 01DEC10-07DEC2010(6D).RECENT INFUSION 07DEC2010.
     Route: 042
     Dates: start: 20100825, end: 20101207
  2. CISPLATIN [Suspect]
     Indication: HEAD AND NECK CANCER
     Dosage: 48MG FROM 25AUG2010- 42MG FROM 01DEC10-07DEC2010(6D).RECENT INFUSION 07DEC2010.
     Route: 042
     Dates: start: 20100825, end: 20101207
  3. DOCETAXEL [Suspect]
     Indication: HEAD AND NECK CANCER
     Dosage: 67MG FROM 25AUG2010- 50MG FROM 01DEC10-07DEC2010(6D).RECENT INFUSION 07DEC2010.
     Route: 042
     Dates: start: 20100825, end: 20101207

REACTIONS (1)
  - MEDIASTINITIS [None]
